FAERS Safety Report 5055928-9 (Version None)
Quarter: 2006Q3

REPORT INFORMATION
  Report Type: 
  Country: None (occurrence: None)
  Receive Date: 20060717
  Receipt Date: 20060628
  Transmission Date: 20061208
  Serious: Yes (Hospitalization)
  Sender: FDA-Public Use
  Company Number: 2006RR-02868

PATIENT
  Age: 56 Year
  Sex: Male

DRUGS (3)
  1. ETODOLAC [Suspect]
     Indication: RHEUMATOID ARTHRITIS
     Dosage: 600 MG, ORAL
     Route: 048
     Dates: end: 20060526
  2. LEFLUNOMIDE [Concomitant]
  3. METHOTREXATE [Concomitant]

REACTIONS (4)
  - FATIGUE [None]
  - HAEMOGLOBIN DECREASED [None]
  - MALAISE [None]
  - RECTAL HAEMORRHAGE [None]
